FAERS Safety Report 20867595 (Version 1)
Quarter: 2022Q2

REPORT INFORMATION
  Report Type: Spontaneous
  Country: US (occurrence: US)
  Receive Date: 20220524
  Receipt Date: 20220524
  Transmission Date: 20220721
  Serious: No
  Sender: FDA-Public Use
  Company Number: US-ChurchDwight-2022-CDW-00166

PATIENT
  Age: 35 Year
  Sex: Female

DRUGS (1)
  1. HOMEOPATHICS\ZINC ACETATE\ZINC GLUCONATE [Suspect]
     Active Substance: HOMEOPATHICS\ZINC ACETATE\ZINC GLUCONATE
     Indication: Nasopharyngitis
     Dosage: PRODUCT USED TWICE (2 PIECES)
     Route: 048
     Dates: start: 20220509, end: 20220510

REACTIONS (2)
  - Ageusia [Recovering/Resolving]
  - Nausea [Recovered/Resolved]

NARRATIVE: CASE EVENT DATE: 20220509
